FAERS Safety Report 4347973-3 (Version None)
Quarter: 2004Q1

REPORT INFORMATION
  Report Type: 
  Country: None (occurrence: None)
  Receive Date: 20040325
  Receipt Date: 20040209
  Transmission Date: 20041129
  Serious: No
  Sender: FDA-Public Use
  Company Number: USA040258724

PATIENT
  Age: 88 Year
  Sex: Female

DRUGS (3)
  1. FORTEO [Suspect]
     Indication: OSTEOPOROSIS
     Dates: start: 20040101
  2. SYNTHROID [Concomitant]
  3. LIPITOR [Concomitant]

REACTIONS (3)
  - FEELING ABNORMAL [None]
  - MUSCLE CRAMP [None]
  - NAUSEA [None]
